FAERS Safety Report 4657531-9 (Version None)
Quarter: 2005Q2

REPORT INFORMATION
  Report Type: 
  Country: None (occurrence: None)
  Receive Date: 20050509
  Receipt Date: 20050509
  Transmission Date: 20051028
  Serious: Yes (Death)
  Sender: FDA-Public Use
  Company Number: None

PATIENT
  Age: 40 Year
  Sex: Male
  Weight: 81.6475 kg

DRUGS (1)
  1. PROTOPIC [Suspect]
     Indication: VITILIGO
     Dates: start: 20030306, end: 20030607

REACTIONS (6)
  - BRAIN NEOPLASM [None]
  - CONDITION AGGRAVATED [None]
  - DERMATITIS ATOPIC [None]
  - LYMPHADENOPATHY [None]
  - MALIGNANT MELANOMA [None]
  - VITILIGO [None]
